FAERS Safety Report 7689789-6 (Version None)
Quarter: 2011Q3

REPORT INFORMATION
  Report Type: 
  Country: None (occurrence: None)
  Receive Date: 20110818
  Receipt Date: 20110813
  Transmission Date: 20111222
  Serious: Yes (Other)
  Sender: FDA-Public Use
  Company Number: DE-BRISTOL-MYERS SQUIBB COMPANY-15972557

PATIENT
  Age: 26 Year
  Sex: Male

DRUGS (7)
  1. CANNABIS [Suspect]
  2. ACETYLSALICYLIC ACID SRT [Suspect]
     Route: 048
  3. MELPERONE HCL [Suspect]
     Dosage: TABS
     Route: 048
  4. ALCOHOL [Suspect]
  5. ABILIFY [Suspect]
     Route: 048
  6. CLOZAPINE [Suspect]
     Dosage: LEPONEX 200MG TABS
     Route: 048
  7. HALDOL [Suspect]
     Route: 048

REACTIONS (2)
  - MULTIPLE DRUG OVERDOSE [None]
  - SOMNOLENCE [None]
